FAERS Safety Report 9338006 (Version 1)
Quarter: 2013Q2

REPORT INFORMATION
  Report Type: Report from Study
  Country: JP (occurrence: JP)
  Receive Date: 20130610
  Receipt Date: 20130610
  Transmission Date: 20140414
  Serious: Yes (Congenital Anomaly)
  Sender: FDA-Public Use
  Company Number: JP-MERCK-2007-165535-NL

PATIENT
  Sex: Female
  Weight: .08 kg

DRUGS (2)
  1. FOLLITROPIN BETA [Suspect]
     Dosage: UNK
     Dates: start: 20070405, end: 20070406
  2. PREGNYL 5000IU [Suspect]

REACTIONS (1)
  - Anencephaly [Not Recovered/Not Resolved]
